FAERS Safety Report 14895639 (Version 8)
Quarter: 2020Q2

REPORT INFORMATION
  Report Type: Report from Study
  Country: CA (occurrence: CA)
  Receive Date: 20180515
  Receipt Date: 20200413
  Transmission Date: 20200713
  Serious: Yes (Hospitalization, Other)
  Sender: FDA-Public Use
  Company Number: CA-UCBSA-2018020155

PATIENT
  Age: 28 Year
  Sex: Female
  Weight: 73 kg

DRUGS (5)
  1. NAPROXEN. [Concomitant]
     Active Substance: NAPROXEN
     Indication: OVARIAN CYST RUPTURED
     Dosage: UNK
  2. CERTOLIZUMAB PEGOL ASP [Suspect]
     Active Substance: CERTOLIZUMAB PEGOL
     Dosage: 200 MILLIGRAM, EV 2 WEEKS(QOW)
     Route: 058
     Dates: start: 20180516, end: 2018
  3. CERTOLIZUMAB PEGOL ASP [Suspect]
     Active Substance: CERTOLIZUMAB PEGOL
     Dosage: 200 MG, EV 2 WEEKS(QOW)
     Route: 058
     Dates: end: 20180427
  4. CORTISONE [Concomitant]
     Active Substance: CORTISONE
     Indication: DRY EYE
     Dosage: UNK
  5. CERTOLIZUMAB PEGOL ASP [Suspect]
     Active Substance: CERTOLIZUMAB PEGOL
     Indication: ANKYLOSING SPONDYLITIS
     Dosage: 400 MG, EV 2 WEEKS(QOW)
     Route: 058
     Dates: start: 20171117

REACTIONS (12)
  - Ear infection [Unknown]
  - Sinusitis [Unknown]
  - Dizziness [Recovering/Resolving]
  - Laryngitis [Recovered/Resolved]
  - Hypoaesthesia [Unknown]
  - Bronchitis [Unknown]
  - Dry eye [Recovered/Resolved]
  - Ovarian haemorrhage [Recovered/Resolved]
  - Oropharyngeal pain [Recovered/Resolved]
  - Rhinorrhoea [Recovered/Resolved]
  - Haemoglobin decreased [Unknown]
  - Ovarian cyst ruptured [Recovered/Resolved]

NARRATIVE: CASE EVENT DATE: 2018
